FAERS Safety Report 20199827 (Version 2)
Quarter: 2022Q1

REPORT INFORMATION
  Report Type: Spontaneous
  Country: US (occurrence: US)
  Receive Date: 20211217
  Receipt Date: 20220102
  Transmission Date: 20220424
  Serious: No
  Sender: FDA-Public Use
  Company Number: US-BEH-2021139527

PATIENT
  Sex: Female

DRUGS (1)
  1. HIZENTRA [Suspect]
     Active Substance: HUMAN IMMUNOGLOBULIN G
     Indication: Immunodeficiency common variable
     Dosage: 11 GRAM, QW
     Route: 058
     Dates: start: 202109

REACTIONS (2)
  - Pruritus [Unknown]
  - Weight fluctuation [Unknown]
